FAERS Safety Report 5074825-6 (Version None)
Quarter: 2006Q3

REPORT INFORMATION
  Report Type: 
  Country: None (occurrence: None)
  Receive Date: 20060804
  Receipt Date: 20060721
  Transmission Date: 20061208
  Serious: Yes (Hospitalization, Other)
  Sender: FDA-Public Use
  Company Number: 2006S1006086

PATIENT
  Age: 91 Year
  Sex: Male

DRUGS (12)
  1. FENTANYL TRANSDERMAL SYSTEM [Suspect]
     Indication: PAIN MANAGEMENT
     Dosage: 100 UG/HR; Q3D; TDER
     Route: 062
     Dates: start: 20050601, end: 20060601
  2. FENTANYL TRANSDERMAL SYSTEM [Suspect]
     Indication: PAIN MANAGEMENT
     Dosage: 100 UG/HR; Q3D; TDER
     Route: 062
     Dates: start: 20060629
  3. ALLOPURINOL [Concomitant]
  4. FUROSEMIDE [Concomitant]
  5. GABAPENTIN [Concomitant]
  6. WARFARIN SODIUM [Concomitant]
  7. RISEDRONATE SODIUM [Concomitant]
  8. LABETALOL HCL [Concomitant]
  9. POTASSIUM [Concomitant]
  10. LOSARTAN POSTASSIUM [Concomitant]
  11. DOCUSATE [Concomitant]
  12. ACETAMINOPHEN W/HYROCODONE [Concomitant]

REACTIONS (10)
  - ATRIAL FIBRILLATION [None]
  - BLOOD POTASSIUM DECREASED [None]
  - CARDIAC FAILURE CONGESTIVE [None]
  - DRUG WITHDRAWAL SYNDROME [None]
  - DYSPNOEA [None]
  - HYPERTENSION [None]
  - HYPOAESTHESIA [None]
  - INSOMNIA [None]
  - MYOGLOBIN BLOOD INCREASED [None]
  - RESTLESS LEGS SYNDROME [None]
